FAERS Safety Report 6999012-3 (Version None)
Quarter: 2010Q3

REPORT INFORMATION
  Report Type: 
  Country: None (occurrence: None)
  Receive Date: 20100920
  Receipt Date: 20100721
  Transmission Date: 20110219
  Serious: No
  Sender: FDA-Public Use
  Company Number: US-ASTRAZENECA-2010SE32765

PATIENT
  Age: 432 Month
  Sex: Male
  Weight: 57.6 kg

DRUGS (8)
  1. SEROQUEL [Suspect]
     Indication: BIPOLAR DISORDER
     Route: 048
     Dates: start: 20070101
  2. SEROQUEL [Suspect]
     Indication: DEPRESSION
     Route: 048
     Dates: start: 20070101
  3. SEROQUEL [Suspect]
     Route: 048
     Dates: start: 20080701, end: 20100501
  4. SEROQUEL [Suspect]
     Route: 048
     Dates: start: 20080701, end: 20100501
  5. XANAX [Concomitant]
     Indication: ANXIETY
     Route: 048
     Dates: start: 20030101
  6. IMIPRAMINE HCL [Concomitant]
     Indication: INSOMNIA
     Dosage: 50 ONCE
     Route: 048
     Dates: start: 20030101
  7. LORTAB [Concomitant]
     Indication: LUMBAR SPINAL STENOSIS
     Dosage: 10.5 FOUR TIMES A DAY
     Route: 048
     Dates: start: 20030101
  8. NEURONTIN [Concomitant]
     Indication: NERVE INJURY
     Route: 048
     Dates: start: 20030101

REACTIONS (8)
  - ANTISOCIAL BEHAVIOUR [None]
  - DEPRESSION [None]
  - DRUG DOSE OMISSION [None]
  - DRUG WITHDRAWAL SYNDROME [None]
  - FEAR [None]
  - INSOMNIA [None]
  - MALAISE [None]
  - WEIGHT DECREASED [None]
